FAERS Safety Report 6654333-9 (Version None)
Quarter: 2010Q1

REPORT INFORMATION
  Report Type: 
  Country: None (occurrence: None)
  Receive Date: 20100326
  Receipt Date: 20100322
  Transmission Date: 20100710
  Serious: Yes (Death, Life-Threatening, Hospitalization)
  Sender: FDA-Public Use
  Company Number: A0839941A

PATIENT
  Age: 71 Year
  Sex: Male
  Weight: 61.6 kg

DRUGS (4)
  1. ARZERRA [Suspect]
     Dosage: 300MG SINGLE DOSE
     Route: 042
     Dates: start: 20091125, end: 20091202
  2. CORTICOSTEROID [Concomitant]
     Route: 042
     Dates: start: 20091125
  3. TYLENOL-500 [Concomitant]
     Route: 048
     Dates: start: 20091125
  4. ANTIHISTAMINE [Concomitant]
     Route: 048
     Dates: start: 20091125

REACTIONS (15)
  - BRAIN NATRIURETIC PEPTIDE INCREASED [None]
  - C-REACTIVE PROTEIN INCREASED [None]
  - CHRONIC LYMPHOCYTIC LEUKAEMIA [None]
  - DYSPNOEA [None]
  - FLUID OVERLOAD [None]
  - HYPERSENSITIVITY [None]
  - INFECTION [None]
  - LOCAL SWELLING [None]
  - LOCALISED OEDEMA [None]
  - LYMPHADENOPATHY [None]
  - NECK MASS [None]
  - PNEUMONIA [None]
  - RESPIRATORY FAILURE [None]
  - THROMBOSIS [None]
  - WHITE BLOOD CELL COUNT DECREASED [None]
